FAERS Safety Report 10818823 (Version 1)
Quarter: 2015Q1

REPORT INFORMATION
  Report Type: Report from Study
  Country: US (occurrence: US)
  Receive Date: 20150218
  Receipt Date: 20150218
  Transmission Date: 20150721
  Serious: No
  Sender: FDA-Public Use
  Company Number: US-ABBVIE-14K-163-1291710-00

PATIENT
  Age: 69 Year
  Sex: Male

DRUGS (4)
  1. UNKNOWN DIABETIC MEDICATION [Concomitant]
     Indication: DIABETES MELLITUS
  2. SYNTHROID [Concomitant]
     Active Substance: LEVOTHYROXINE SODIUM
     Indication: THYROIDECTOMY
  3. UNKNOWN BLOOD PRESSURE MEDICATION [Concomitant]
     Active Substance: UNSPECIFIED INGREDIENT
     Indication: HYPERTENSION
  4. HUMIRA [Suspect]
     Active Substance: ADALIMUMAB
     Indication: PSORIASIS
     Route: 065
     Dates: start: 2013

REACTIONS (1)
  - Nasopharyngitis [Recovered/Resolved]

NARRATIVE: CASE EVENT DATE: 20140930
